FAERS Safety Report 7373413-6 (Version None)
Quarter: 2011Q1

REPORT INFORMATION
  Report Type: 
  Country: None (occurrence: None)
  Receive Date: 20110325
  Receipt Date: 20110316
  Transmission Date: 20110831
  Serious: Yes (Other)
  Sender: FDA-Public Use
  Company Number: BR-AMGEN-BRASP2011012587

PATIENT
  Age: 65 Year
  Sex: Male
  Weight: 70 kg

DRUGS (7)
  1. LEFLUNOMIDE [Concomitant]
     Dosage: 20 MG, 2X/DAY
     Dates: start: 20070101
  2. PREDNISONE [Concomitant]
     Dosage: 5 MG, 2X/DAY
     Dates: start: 20050101
  3. ATENOLOL [Concomitant]
     Indication: HYPERTENSION
     Dosage: 25 MG, 2X/WEEK
  4. ETANERCEPT [Suspect]
     Indication: RHEUMATOID ARTHRITIS
     Dosage: 50 MG, QWK
     Route: 058
     Dates: start: 20070101
  5. ENALAPRIL MALEATE [Concomitant]
     Indication: HYPERTENSION
     Dosage: 20 MG, 2X/DAY
     Dates: start: 20050101
  6. PROPRANOLOL [Concomitant]
     Dosage: UNK
     Dates: start: 20050101
  7. RANITIDINE [Concomitant]
     Dosage: 150 MG, 2X/DAY

REACTIONS (1)
  - LEPROSY [None]
